FAERS Safety Report 16354255 (Version 4)
Quarter: 2020Q3

REPORT INFORMATION
  Report Type: Spontaneous
  Country: US (occurrence: US)
  Receive Date: 20190524
  Receipt Date: 20200923
  Transmission Date: 20201102
  Serious: Yes (Other)
  Sender: FDA-Public Use
  Company Number: US-BAUSCH-BL-2019-014602

PATIENT
  Age: 58 Year
  Sex: Female
  Weight: 81.72 kg

DRUGS (2)
  1. LUMIFY [Suspect]
     Active Substance: BRIMONIDINE TARTRATE
     Indication: EYE IRRITATION
     Route: 047
  2. LUMIFY [Suspect]
     Active Substance: BRIMONIDINE TARTRATE
     Indication: OCULAR HYPERAEMIA
     Route: 047
     Dates: start: 201905, end: 201905

REACTIONS (6)
  - Suspected transmission of an infectious agent via product [Unknown]
  - Vision blurred [Not Recovered/Not Resolved]
  - Abnormal sensation in eye [Unknown]
  - Eye infection bacterial [Unknown]
  - Product quality issue [Unknown]
  - Foreign body sensation in eyes [Unknown]

NARRATIVE: CASE EVENT DATE: 2019
